FAERS Safety Report 12727483 (Version 1)
Quarter: 2016Q3

REPORT INFORMATION
  Report Type: Spontaneous
  Country: PT (occurrence: PT)
  Receive Date: 20160909
  Receipt Date: 20160909
  Transmission Date: 20161109
  Serious: Yes (Disabling)
  Sender: FDA-Public Use
  Company Number: PT-TEVA-689160ISR

PATIENT
  Sex: Female

DRUGS (1)
  1. SERTRALINA RATIOPHARM [Suspect]
     Active Substance: SERTRALINE HYDROCHLORIDE
     Dosage: .5 DOSAGE FORMS DAILY;
     Route: 048
     Dates: start: 201607

REACTIONS (3)
  - Malaise [Not Recovered/Not Resolved]
  - Tinnitus [Not Recovered/Not Resolved]
  - Feeling hot [Not Recovered/Not Resolved]

NARRATIVE: CASE EVENT DATE: 201607
